FAERS Safety Report 7376906-0 (Version None)
Quarter: 2011Q1

REPORT INFORMATION
  Report Type: 
  Country: None (occurrence: None)
  Receive Date: 20110327
  Receipt Date: 20110318
  Transmission Date: 20110831
  Serious: Yes (Hospitalization)
  Sender: FDA-Public Use
  Company Number: FR-BRISTOL-MYERS SQUIBB COMPANY-15621360

PATIENT
  Age: 72 Year
  Sex: Female

DRUGS (7)
  1. VASTAREL [Suspect]
  2. OSSOPAN [Suspect]
     Route: 048
  3. COLECALCIFEROL [Suspect]
  4. LIPANTHYL [Suspect]
     Indication: DYSLIPIDAEMIA
     Dosage: INTERRUPTED AND RESTARTED.
     Route: 048
     Dates: start: 20080101
  5. IRBESARTAN [Suspect]
     Indication: HYPERTENSION
     Route: 048
     Dates: start: 20080101
  6. TRAVATAN [Suspect]
  7. KARDEGIC [Suspect]

REACTIONS (1)
  - TOXIC SKIN ERUPTION [None]
